FAERS Safety Report 9879797 (Version 1)
Quarter: 2014Q1

REPORT INFORMATION
  Report Type: Spontaneous
  Country: US (occurrence: US)
  Receive Date: 20140206
  Receipt Date: 20140206
  Transmission Date: 20141002
  Serious: No
  Sender: FDA-Public Use
  Company Number: US-009507513-1402USA001941

PATIENT
  Age: 10 Year
  Sex: Male

DRUGS (3)
  1. NASONEX [Suspect]
     Indication: HYPERSENSITIVITY
     Dosage: UNK
  2. PEPCID [Concomitant]
  3. SINGULAIR [Concomitant]

REACTIONS (2)
  - Malaise [Unknown]
  - Accidental exposure to product [Unknown]
